FAERS Safety Report 7590935-3 (Version None)
Quarter: 2011Q3

REPORT INFORMATION
  Report Type: 
  Country: None (occurrence: None)
  Receive Date: 20110705
  Receipt Date: 20110624
  Transmission Date: 20111222
  Serious: Yes (Hospitalization, Other)
  Sender: FDA-Public Use
  Company Number: PHHY2011US57014

PATIENT
  Sex: Female

DRUGS (21)
  1. GILENYA [Suspect]
     Indication: MULTIPLE SCLEROSIS
     Dosage: 0.5 MG, QD
     Route: 048
  2. ATENOLOL [Concomitant]
     Dosage: 12.5 MG, UNK
  3. CLONIDINE [Concomitant]
     Dosage: 0.1 MG, DAILY
  4. DEMADEX [Concomitant]
     Dosage: UNK
  5. SIMVASTATIN [Concomitant]
     Dosage: 20 MG, UNK
  6. VITAMIN B COMPLEX CAP [Concomitant]
     Dosage: UNK
  7. ATROVENT [Concomitant]
     Dosage: UNK, BID
  8. SPIRIVA [Concomitant]
     Dosage: UNK, ONCE DAILY
  9. ADVAIR DISKUS 100/50 [Concomitant]
     Dosage: 250/50 MCG TWICE DAILY
  10. REVATIO [Concomitant]
     Dosage: 20 MG, UNK
  11. PLAVIX [Concomitant]
     Dosage: 75 MG, UNK
  12. COMBIVENT [Concomitant]
     Dosage: UNK
  13. OXYGEN [Concomitant]
     Dosage: UNK
     Route: 045
  14. TRACLEER [Concomitant]
     Dosage: UNK
  15. DIGOXIN [Concomitant]
     Dosage: 0.125 MG, DAILY
  16. BONIVA [Concomitant]
     Dosage: 150 MG, UNK
  17. TORSEMIDE [Concomitant]
     Dosage: 10 MG, DAILY
  18. GLIMEPIRIDE [Concomitant]
     Dosage: 1 MG, UNK
  19. CYMBALTA [Concomitant]
     Dosage: 60 MG, DAILY
  20. JANUVIA [Concomitant]
     Dosage: 25 MG, UNK
  21. LEXAPRO [Concomitant]
     Dosage: 10 MG, QHS

REACTIONS (11)
  - LYMPHOCYTE COUNT DECREASED [None]
  - PLATELET COUNT DECREASED [None]
  - RED BLOOD CELL COUNT DECREASED [None]
  - OEDEMA PERIPHERAL [None]
  - HAEMATOCRIT DECREASED [None]
  - DYSPNOEA [None]
  - BLOOD GLUCOSE INCREASED [None]
  - HAEMOGLOBIN DECREASED [None]
  - RED CELL DISTRIBUTION WIDTH INCREASED [None]
  - RENAL FAILURE [None]
  - CONSTIPATION [None]
